FAERS Safety Report 6465638 (Version 4)
Quarter: 2025Q3

REPORT INFORMATION
  Report Type: Spontaneous
  Country: JP (occurrence: JP)
  Receive Date: 20071113
  Receipt Date: 20250923
  Transmission Date: 20251021
  Serious: Yes (Life-Threatening, Hospitalization, Other)
  Sender: PFIZER
  Company Number: JP-PFIZER INC-2007094225

PATIENT
  Age: 52 Year
  Sex: Female
  Weight: 49 kg

DRUGS (4)
  1. UNASYN [Suspect]
     Active Substance: AMPICILLIN SODIUM\SULBACTAM SODIUM
     Indication: Pneumonia pneumococcal
     Dosage: 3 G, 2X/DAY
     Route: 041
     Dates: start: 20070512, end: 20070514
  2. MINOCYCLINE [Suspect]
     Active Substance: MINOCYCLINE HYDROCHLORIDE
     Dosage: 100 MG, 2X/DAY
     Route: 041
     Dates: start: 20070516, end: 20070517
  3. CEFPIROME [Suspect]
     Active Substance: CEFPIROME
     Indication: Pneumonia pneumococcal
     Dosage: 1 G, 2X/DAY
     Route: 041
     Dates: start: 20070515, end: 20070516
  4. MEROPENEM [Suspect]
     Active Substance: MEROPENEM
     Indication: Pneumonia pneumococcal
     Dosage: 0.5 G, 2X/DAY
     Route: 041
     Dates: start: 20070516, end: 20070517

REACTIONS (3)
  - Pulmonary toxicity [Recovered/Resolved]
  - Acute respiratory distress syndrome [Recovered/Resolved]
  - Pneumonitis [Recovered/Resolved]

NARRATIVE: CASE EVENT DATE: 20070515
